FAERS Safety Report 4963383-X (Version None)
Quarter: 2006Q2

REPORT INFORMATION
  Report Type: 
  Country: None (occurrence: None)
  Receive Date: 20060404
  Receipt Date: 20060404
  Transmission Date: 20061013
  Serious: Yes (Hospitalization, Other)
  Sender: FDA-Public Use
  Company Number: None

PATIENT
  Age: 58 Year
  Sex: Male

DRUGS (2)
  1. HYDROCHLOROTHIAZIDE [Suspect]
     Dosage: 12.5 MG PO DAILY
     Route: 048
  2. LISINOPRIL [Suspect]
     Dosage: 40 MG PO DAILY
     Route: 048

REACTIONS (5)
  - DIZZINESS EXERTIONAL [None]
  - DIZZINESS POSTURAL [None]
  - DRUG EFFECT INCREASED [None]
  - HYPOTENSION [None]
  - POLYURIA [None]
